FAERS Safety Report 21347400 (Version 1)
Quarter: 2022Q3

REPORT INFORMATION
  Report Type: Report from Study
  Country: US (occurrence: US)
  Receive Date: 20220919
  Receipt Date: 20220919
  Transmission Date: 20221026
  Serious: Yes (Other)
  Sender: FDA-Public Use
  Company Number: US-BRISTOL-MYERS SQUIBB COMPANY-2022-013859

PATIENT
  Age: 55 Year
  Sex: Female

DRUGS (1)
  1. OZANIMOD [Suspect]
     Active Substance: OZANIMOD
     Indication: Multiple sclerosis
     Route: 048
     Dates: start: 20220301

REACTIONS (15)
  - Heart rate decreased [Unknown]
  - Cardiac flutter [Unknown]
  - Muscle spasms [Unknown]
  - Balance disorder [Unknown]
  - Urinary tract infection [Unknown]
  - Diarrhoea [Unknown]
  - Sleep disorder [Recovering/Resolving]
  - Headache [Unknown]
  - Dyspnoea [Unknown]
  - Palpitations [Unknown]
  - Chromaturia [Unknown]
  - Urine odour abnormal [Unknown]
  - Fatigue [Recovered/Resolved]
  - Secretion discharge [Unknown]
  - Asthenia [Unknown]

NARRATIVE: CASE EVENT DATE: 20220701
